FAERS Safety Report 15340304 (Version 2)
Quarter: 2018Q3

REPORT INFORMATION
  Report Type: Spontaneous
  Country: US (occurrence: US)
  Receive Date: 20180831
  Receipt Date: 20180907
  Transmission Date: 20181010
  Serious: Yes (Death, Hospitalization)
  Sender: FDA-Public Use
  Company Number: US-MITSUBISHI TANABE PHARMA CORPORATION-MPE2018-0020331

PATIENT
  Age: 55 Year
  Sex: Male

DRUGS (5)
  1. XARELTO [Concomitant]
     Active Substance: RIVAROXABAN
     Indication: PULMONARY EMBOLISM
     Route: 065
  2. RITUXAMAB [Concomitant]
     Route: 065
  3. GOLIMUMAB [Concomitant]
     Active Substance: GOLIMUMAB
     Route: 042
  4. RADICAVA [Suspect]
     Active Substance: EDARAVONE
     Indication: AMYOTROPHIC LATERAL SCLEROSIS
     Route: 042
     Dates: start: 20170831
  5. COSENTYX [Concomitant]
     Active Substance: SECUKINUMAB
     Route: 065

REACTIONS (3)
  - Fall [Unknown]
  - Death [Fatal]
  - Autoimmune haemolytic anaemia [Unknown]

NARRATIVE: CASE EVENT DATE: 20170911
